FAERS Safety Report 9731905 (Version 1)
Quarter: 2013Q4

REPORT INFORMATION
  Report Type: Spontaneous
  Country: CA (occurrence: CA)
  Receive Date: 20131205
  Receipt Date: 20131205
  Transmission Date: 20140711
  Serious: Yes (Other)
  Sender: FDA-Public Use
  Company Number: CA-BAYER-2013-146755

PATIENT
  Age: 29 Year
  Sex: Female

DRUGS (2)
  1. YASMIN 28 [Suspect]
     Dosage: UNK
     Route: 048
  2. AVELOX [Concomitant]
     Dosage: UNK
     Dates: start: 20110802

REACTIONS (1)
  - Optic ischaemic neuropathy [None]
